FAERS Safety Report 21491007 (Version 4)
Quarter: 2023Q1

REPORT INFORMATION
  Report Type: Spontaneous
  Country: DE (occurrence: DE)
  Receive Date: 20221021
  Receipt Date: 20230118
  Transmission Date: 20230417
  Serious: Yes (Death, Other)
  Sender: FDA-Public Use
  Company Number: None

PATIENT
  Age: 79 Year
  Sex: Female
  Weight: 62 kg

DRUGS (95)
  1. ASPIRIN [Suspect]
     Active Substance: ASPIRIN
     Indication: Thrombosis prophylaxis
     Dosage: UNK (TABLET UNCOATED)
     Route: 048
     Dates: start: 19950116, end: 19950124
  2. BROMHEXINE HYDROCHLORIDE [Suspect]
     Active Substance: BROMHEXINE HYDROCHLORIDE
     Indication: Cough
     Dosage: UNK
     Route: 048
     Dates: start: 19950116, end: 19950116
  3. CEFUROXIME AXETIL [Suspect]
     Active Substance: CEFUROXIME AXETIL
     Indication: Infection
     Dosage: 3 DOSAGE FORM
     Route: 042
     Dates: start: 19950124, end: 19950131
  4. BUTYLSCOPOLAMINE BROMIDE [Suspect]
     Active Substance: BUTYLSCOPOLAMINE BROMIDE
     Indication: Pain
     Dosage: UNK (SUPPOSITORY)
     Route: 054
     Dates: start: 19950130, end: 19950130
  5. ACETYLCYSTEINE [Suspect]
     Active Substance: ACETYLCYSTEINE
     Indication: Cough
     Dosage: UNK, (3 DF)
     Route: 048
     Dates: start: 19950119
  6. BROMAZEPAM [Suspect]
     Active Substance: BROMAZEPAM
     Indication: Sedation
     Dosage: 0.25 DOSAGE FORM (TABLET UNCOATED)
     Route: 048
     Dates: start: 19950128, end: 19950128
  7. OXAZEPAM [Suspect]
     Active Substance: OXAZEPAM
     Indication: Sleep disorder
     Dosage: UNK TABLET (UNCOATED)
     Route: 048
     Dates: start: 19950121, end: 19950121
  8. ZINACEF [Suspect]
     Active Substance: CEFUROXIME SODIUM
     Indication: Hyperuricaemia
     Dosage: 3 DOSAGE FORM
     Route: 048
     Dates: start: 19950124, end: 19950131
  9. SULFAMETHOXAZOLE\TRIMETHOPRIM [Suspect]
     Active Substance: SULFAMETHOXAZOLE\TRIMETHOPRIM
     Indication: Infection
     Dosage: 2 DOSAGE FORM, QD, EVERY 1 DAY (TABLET)
     Route: 048
     Dates: start: 19950122, end: 19950123
  10. CYANOCOBALAMIN\FERROUS GLYCINE SULFATE\FOLIC ACID [Suspect]
     Active Substance: CYANOCOBALAMIN\FERROUS GLYCINE SULFATE\FOLIC ACID
     Indication: Iron deficiency
     Dosage: 2 DOSAGE FORM, QD, EVERY 1 DAY
     Route: 048
     Dates: start: 19950119
  11. DOPAMINE HYDROCHLORIDE [Suspect]
     Active Substance: DOPAMINE HYDROCHLORIDE
     Indication: Cardiovascular disorder
     Dosage: UNK, INJECTION
     Route: 042
     Dates: start: 19950113, end: 19950115
  12. VALIUM [Suspect]
     Active Substance: DIAZEPAM
     Indication: Pain
     Dosage: UNK (UNCOATED)
     Route: 048
  13. FLUNITRAZEPAM [Suspect]
     Active Substance: FLUNITRAZEPAM
     Indication: Anaesthesia
     Dosage: UNK
     Route: 042
     Dates: start: 19950113, end: 19950113
  14. DIGITOXIN [Suspect]
     Active Substance: DIGITOXIN
     Indication: Cardiac failure
     Dosage: 1 DOSAGE FORM, TABLET, EVERY 1 DAY
     Route: 048
     Dates: start: 19950124, end: 19950124
  15. DIGITOXIN [Suspect]
     Active Substance: DIGITOXIN
     Indication: Left ventricular failure
     Dosage: 1 DOSAGE FORM, QD (EVERY 1 DAY)
     Route: 048
     Dates: start: 19950113, end: 19950114
  16. DIGITOXIN [Suspect]
     Active Substance: DIGITOXIN
     Dosage: 1 DOSAGE FORM, QD (EVERY 1 DAY)
     Route: 042
     Dates: start: 19950124
  17. FERROUS GLYCINE SULFATE [Suspect]
     Active Substance: FERROUS GLYCINE SULFATE
     Indication: Iron deficiency
     Dosage: UNK
     Route: 048
  18. FERROUS GLYCINE SULFATE [Suspect]
     Active Substance: FERROUS GLYCINE SULFATE
     Dosage: 2 DOSAGE FORM, QD (CYANOCOBALAMIN)
     Route: 048
     Dates: start: 19950119
  19. FERROUS GLYCINE SULFATE [Suspect]
     Active Substance: FERROUS GLYCINE SULFATE
     Dosage: 2 DOSAGE FORM, QD ((FERROUS (II) GLYCINE SULFATE COMPLEX))
     Route: 048
     Dates: start: 19950119
  20. FERROUS GLYCINE SULFATE [Suspect]
     Active Substance: FERROUS GLYCINE SULFATE
     Dosage: 2 DOSAGE FORM, QD (FOLIC ACID)
     Route: 048
     Dates: start: 19950119
  21. CITRIC ACID MONOHYDRATE\POTASSIUM BICARBONATE\POTASSIUM CITRATE [Suspect]
     Active Substance: CITRIC ACID MONOHYDRATE\POTASSIUM BICARBONATE\POTASSIUM CITRATE
     Indication: Blood potassium decreased
     Dosage: UNK, TABLET UNCOATED
     Route: 048
     Dates: start: 19950119, end: 19950120
  22. CITRIC ACID MONOHYDRATE\POTASSIUM BICARBONATE\POTASSIUM CITRATE [Suspect]
     Active Substance: CITRIC ACID MONOHYDRATE\POTASSIUM BICARBONATE\POTASSIUM CITRATE
     Dosage: UNK
     Route: 048
     Dates: start: 19950123, end: 19950127
  23. CITRIC ACID MONOHYDRATE\POTASSIUM BICARBONATE\POTASSIUM CITRATE [Suspect]
     Active Substance: CITRIC ACID MONOHYDRATE\POTASSIUM BICARBONATE\POTASSIUM CITRATE
     Indication: Blood potassium decreased
     Dosage: UNK
     Route: 048
     Dates: start: 19950119, end: 19950120
  24. CITRIC ACID MONOHYDRATE\POTASSIUM BICARBONATE\POTASSIUM CITRATE [Suspect]
     Active Substance: CITRIC ACID MONOHYDRATE\POTASSIUM BICARBONATE\POTASSIUM CITRATE
     Dosage: UNK
     Route: 048
     Dates: start: 19950123, end: 19950127
  25. POTASSIUM BICARBONATE\POTASSIUM CITRATE [Suspect]
     Active Substance: POTASSIUM BICARBONATE\POTASSIUM CITRATE
     Indication: Blood potassium decreased
     Dosage: UNK UNCOATED
     Route: 048
     Dates: start: 19950123, end: 19950127
  26. POTASSIUM BICARBONATE\POTASSIUM CITRATE [Suspect]
     Active Substance: POTASSIUM BICARBONATE\POTASSIUM CITRATE
     Dosage: UNK
     Route: 048
     Dates: start: 19950119, end: 19950120
  27. LASIX [Suspect]
     Active Substance: FUROSEMIDE
     Indication: Oedema
     Dosage: 1 DOSAGE FORM, QD (UNCOATED)
     Route: 048
     Dates: end: 19950112
  28. LASIX [Suspect]
     Active Substance: FUROSEMIDE
     Indication: Polyuria
     Dosage: UNK, INJECTION
     Route: 042
     Dates: start: 19950113, end: 19950115
  29. LASIX [Suspect]
     Active Substance: FUROSEMIDE
     Dosage: 1 DOSAGE FORM, QD
     Route: 048
     Dates: start: 19950112
  30. LASIX [Suspect]
     Active Substance: FUROSEMIDE
     Dosage: 1 DOSAGE FORM, QD
     Route: 048
     Dates: end: 19950115
  31. MIDAZOLAM HYDROCHLORIDE [Suspect]
     Active Substance: MIDAZOLAM HYDROCHLORIDE
     Indication: Anaesthesia
     Dosage: UNK, SOLUTION FOR INJECTION
     Route: 042
     Dates: start: 19950113, end: 19950113
  32. METOCLOPRAMIDE HYDROCHLORIDE [Suspect]
     Active Substance: METOCLOPRAMIDE HYDROCHLORIDE
     Indication: Product used for unknown indication
     Dosage: UNK
     Route: 048
  33. METOCLOPRAMIDE HYDROCHLORIDE [Suspect]
     Active Substance: METOCLOPRAMIDE HYDROCHLORIDE
     Indication: Nausea
     Dosage: 60 DROP, QD, EVERY 1 DAY
     Route: 048
     Dates: start: 19950129
  34. FLUNITRAZEPAM [Suspect]
     Active Substance: FLUNITRAZEPAM
     Indication: Anaesthesia
     Dosage: UNK, INJECTION
     Route: 042
     Dates: start: 19950113, end: 19950113
  35. BACTRIM [Suspect]
     Active Substance: SULFAMETHOXAZOLE\TRIMETHOPRIM
     Indication: Infection
     Dosage: 2 DOSAGE FORM, QD UNCOATED
     Route: 048
     Dates: start: 19950122, end: 19950123
  36. TRAMADOL HYDROCHLORIDE [Suspect]
     Active Substance: TRAMADOL HYDROCHLORIDE
     Indication: Pain
     Dosage: UNK, ORAL DROPS
     Route: 048
     Dates: start: 19950126, end: 19950126
  37. VALIUM [Suspect]
     Active Substance: DIAZEPAM
     Indication: Pain
     Dosage: UNK, TABLET
     Route: 048
  38. ALLOPURINOL [Suspect]
     Active Substance: ALLOPURINOL
     Indication: Hyperuricaemia
     Dosage: UNK UNCOATED TABLET
     Route: 048
     Dates: start: 19950126
  39. ADALAT [Concomitant]
     Active Substance: NIFEDIPINE
     Indication: Hypertension
     Dosage: 2 DOSAGE FORM, QD, EVERY 1 DAY
     Route: 048
     Dates: start: 19950106, end: 19950112
  40. ANTITHROMBIN III HUMAN [Concomitant]
     Active Substance: ANTITHROMBIN III HUMAN
     Indication: Coagulopathy
     Dosage: UNK
     Route: 042
     Dates: start: 19950113, end: 19950113
  41. NOREPINEPHRINE HYDROCHLORIDE, (+/-)- [Concomitant]
     Active Substance: NOREPINEPHRINE HYDROCHLORIDE, (+/-)-
     Indication: Cardiovascular disorder
     Dosage: UNK, INJECTION
     Route: 042
     Dates: start: 19950113, end: 19950113
  42. Beloc mite [Concomitant]
     Indication: Hypertension
     Dosage: 2 DOSAGE FORM, QD
     Route: 048
     Dates: start: 19950112, end: 19950112
  43. Beloc mite [Concomitant]
     Indication: Hypertonia
     Dosage: UNK UNCOATED
     Route: 048
     Dates: start: 19950112
  44. LACTULOSE [Concomitant]
     Active Substance: LACTULOSE
     Indication: Constipation
     Dosage: UNK
     Route: 048
     Dates: start: 19950109, end: 19950117
  45. CALCIUM [Concomitant]
     Active Substance: CALCIUM
     Indication: Blood calcium decreased
     Dosage: UNK
     Route: 042
     Dates: start: 19950113, end: 19950113
  46. Ciprobay filmtabletten [Concomitant]
     Indication: Infection
     Dosage: UNK UNCOATED
     Route: 048
     Dates: start: 19950203, end: 19950203
  47. CAPTOPRIL [Concomitant]
     Active Substance: CAPTOPRIL
     Indication: Cardiac failure
     Dosage: UNK
     Route: 048
     Dates: start: 19950112, end: 19950112
  48. CAPTOPRIL [Concomitant]
     Active Substance: CAPTOPRIL
     Dosage: UNK
     Route: 065
     Dates: start: 19950112
  49. DOBUTREX [Concomitant]
     Active Substance: DOBUTAMINE HYDROCHLORIDE
     Indication: Cardiovascular disorder
     Dosage: UNK
     Route: 042
     Dates: start: 19950114, end: 19950115
  50. DULCOLAX NOS [Concomitant]
     Active Substance: BISACODYL OR DOCUSATE SODIUM
     Indication: Constipation
     Dosage: UNK
     Route: 048
     Dates: start: 19950116, end: 19950202
  51. DIGITOXIN [Concomitant]
     Active Substance: DIGITOXIN
     Indication: Cardiac failure
     Dosage: 1 DOSAGE FORM, QD
     Route: 048
     Dates: start: 19950113, end: 19950114
  52. DILTIAZEM [Concomitant]
     Active Substance: DILTIAZEM
     Indication: Coronary artery disease
     Dosage: UNK
     Route: 042
     Dates: start: 19950113, end: 19950113
  53. PIRITRAMIDE [Concomitant]
     Active Substance: PIRITRAMIDE
     Indication: Pain
     Dosage: UNK
     Route: 042
     Dates: start: 19950113, end: 19950115
  54. ENFLURANE [Concomitant]
     Active Substance: ENFLURANE
     Indication: Anaesthesia
     Dosage: UNK, INHALATION VAPOUR, SOLUTION
     Dates: start: 19950113, end: 19950113
  55. ETHACRYNIC ACID [Concomitant]
     Active Substance: ETHACRYNIC ACID
     Indication: Oedema
     Dosage: UNK UNCOATED
     Route: 048
     Dates: start: 19950116, end: 19950116
  56. ETHACRYNIC ACID [Concomitant]
     Active Substance: ETHACRYNIC ACID
     Indication: Polyuria
     Dosage: UNK, INJECTION
     Route: 042
     Dates: start: 19950113, end: 19950115
  57. EUCALYPTUS OIL [Concomitant]
     Active Substance: EUCALYPTUS OIL
     Indication: Prophylaxis
     Dosage: UNK
     Route: 062
  58. FENTANYL [Concomitant]
     Active Substance: FENTANYL
     Indication: Anaesthesia
     Dosage: UNK
     Route: 042
     Dates: start: 19950113, end: 19950113
  59. Gelafundin [Concomitant]
     Indication: Hypovolaemia
     Dosage: UNK (CALCIUM CHLORIDE)
     Route: 042
     Dates: start: 19950113, end: 19950113
  60. Gelafundin [Concomitant]
     Dosage: UNK (GELATIN)
     Route: 042
     Dates: start: 19950113, end: 19950113
  61. Gelafundin [Concomitant]
     Dosage: UNK (SODIUM CHLORIDE)
     Route: 042
     Dates: start: 19950113, end: 19950113
  62. DEXTROSE [Concomitant]
     Active Substance: DEXTROSE
     Indication: Parenteral nutrition
     Dosage: UNK
     Route: 042
     Dates: start: 19950113, end: 19950113
  63. DEXTROSE [Concomitant]
     Active Substance: DEXTROSE
     Dosage: UNK
     Route: 042
     Dates: start: 19950114, end: 19950114
  64. DEXTROSE [Concomitant]
     Active Substance: DEXTROSE
     Indication: Parenteral nutrition
     Dosage: UNK
     Route: 042
     Dates: start: 19950113, end: 19950114
  65. HEPARIN [Concomitant]
     Active Substance: HEPARIN SODIUM
     Indication: Thrombosis prophylaxis
     Dosage: UNK
     Route: 042
     Dates: start: 19950109, end: 19950109
  66. HEPARIN [Concomitant]
     Active Substance: HEPARIN SODIUM
     Dosage: 15000 INTERNATIONAL UNIT, QD
     Route: 058
     Dates: start: 19950109
  67. ALBUMIN HUMAN [Concomitant]
     Active Substance: ALBUMIN HUMAN
     Indication: Hypovolaemia
     Dosage: UNK
     Route: 042
     Dates: start: 19950113, end: 19950113
  68. MAGNESIUM ASPARTATE\POTASSIUM ASPARTATE [Concomitant]
     Active Substance: MAGNESIUM ASPARTATE\POTASSIUM ASPARTATE
     Indication: Electrolyte imbalance
     Dosage: UNK (COBALT HYDROGENASPARTATE)
     Route: 042
     Dates: start: 19950113, end: 19950113
  69. MAGNESIUM ASPARTATE\POTASSIUM ASPARTATE [Concomitant]
     Active Substance: MAGNESIUM ASPARTATE\POTASSIUM ASPARTATE
     Dosage: UNK (COPPER HYDROGENASPARTATE)
     Route: 042
     Dates: start: 19950113, end: 19950113
  70. MAGNESIUM ASPARTATE\POTASSIUM ASPARTATE [Concomitant]
     Active Substance: MAGNESIUM ASPARTATE\POTASSIUM ASPARTATE
     Dosage: UNK (MAGNESIUM ASPARTATE)
     Route: 042
     Dates: start: 19950113, end: 19950113
  71. MAGNESIUM ASPARTATE\POTASSIUM ASPARTATE [Concomitant]
     Active Substance: MAGNESIUM ASPARTATE\POTASSIUM ASPARTATE
     Dosage: UNK (POTASSIUM)
     Route: 042
     Dates: start: 19950113, end: 19950113
  72. INSULIN NOS [Concomitant]
     Active Substance: INSULIN NOS
     Indication: Blood glucose increased
     Dosage: UNK
     Route: 042
     Dates: start: 19950113, end: 19950115
  73. ISOSORBIDE DINITRATE [Concomitant]
     Active Substance: ISOSORBIDE DINITRATE
     Indication: Coronary artery disease
     Dosage: UNK
     Route: 042
     Dates: start: 19950112, end: 19950112
  74. ISOSORBIDE DINITRATE [Concomitant]
     Active Substance: ISOSORBIDE DINITRATE
     Dosage: UNK
     Route: 042
     Dates: start: 19950112
  75. KCL [Concomitant]
     Active Substance: POTASSIUM CHLORIDE
     Indication: Blood potassium decreased
     Dosage: UNK
     Route: 042
     Dates: start: 19950113, end: 19950113
  76. POTASSIUM CHLORIDE [Concomitant]
     Active Substance: POTASSIUM CHLORIDE
     Indication: Hypokalaemia
     Dosage: UNK UNCOATED
     Route: 048
     Dates: start: 19950113, end: 19950201
  77. LEVOTHYROXINE SODIUM [Concomitant]
     Active Substance: LEVOTHYROXINE SODIUM
     Indication: Thyroid disorder
     Dosage: 1 DOSAGE FORM, QD (UNCOATED)
     Route: 048
  78. MANNITOL [Concomitant]
     Active Substance: MANNITOL
     Indication: Polyuria
     Dosage: UNK
     Route: 042
     Dates: start: 19950113, end: 19950115
  79. MANNITOL [Concomitant]
     Active Substance: MANNITOL
     Dosage: UNK
     Route: 042
     Dates: start: 19950112, end: 19950115
  80. NITROLINGUAL [Concomitant]
     Active Substance: NITROGLYCERIN
     Indication: Cardiac failure
     Dosage: UNK
     Route: 042
     Dates: start: 19950113, end: 19950113
  81. Novodigal [Concomitant]
     Indication: Cardiac failure
     Dosage: 1 DOSAGE FORM, QD UNCOATED
     Route: 048
     Dates: start: 19950107
  82. PERFAN [Concomitant]
     Active Substance: ENOXIMONE
     Indication: Cardiac failure
     Dosage: UNK
     Route: 042
     Dates: start: 19950113, end: 19950113
  83. PANCURONIUM [Concomitant]
     Active Substance: PANCURONIUM
     Indication: Anaesthesia
     Dosage: UNK
     Route: 042
     Dates: start: 19950113, end: 19950113
  84. RINGERS SOLUTION [Concomitant]
     Active Substance: CALCIUM CHLORIDE\POTASSIUM CHLORIDE\SODIUM CHLORIDE
     Indication: Fluid replacement
     Dosage: UNK
     Route: 042
     Dates: start: 19950113, end: 19950201
  85. Solu-decortin h [Concomitant]
     Indication: Hypersensitivity
     Dosage: UNK
     Route: 042
     Dates: start: 19950202
  86. SODIUM CHLORIDE [Concomitant]
     Active Substance: SODIUM CHLORIDE
     Indication: Hyponatraemia
     Dosage: UNK
     Route: 042
     Dates: start: 19950115, end: 19950115
  87. SUFENTA [Concomitant]
     Active Substance: SUFENTANIL CITRATE
     Indication: Anaesthesia
     Dosage: UNK
     Route: 042
     Dates: start: 19950113, end: 19950113
  88. SUPRARENIN [Concomitant]
     Active Substance: EPINEPHRINE
     Indication: Cardiovascular disorder
     Dosage: UNK
     Route: 042
     Dates: start: 19950113, end: 19950113
  89. CLEMASTINE FUMARATE [Concomitant]
     Active Substance: CLEMASTINE FUMARATE
     Indication: Hypersensitivity
     Dosage: 4 DOSAGE FORM, QD TABLET
     Route: 048
     Dates: start: 19950203, end: 19950203
  90. CLEMASTINE FUMARATE [Concomitant]
     Active Substance: CLEMASTINE FUMARATE
     Dosage: UNK, INJECTION
     Route: 042
     Dates: start: 19950202
  91. BUPRENORPHINE HYDROCHLORIDE [Concomitant]
     Active Substance: BUPRENORPHINE HYDROCHLORIDE
     Indication: Pain
     Dosage: UNK UNCOATED
     Route: 048
  92. TRASYLOL [Concomitant]
     Active Substance: APROTININ
     Indication: Coagulopathy
     Dosage: UNK
     Route: 042
     Dates: start: 19950113, end: 19950113
  93. SUCRALFATE [Concomitant]
     Active Substance: SUCRALFATE
     Indication: Prophylaxis
     Dosage: 3 DOSAGE FORM, QD
     Route: 048
     Dates: start: 19950119, end: 19950119
  94. SUCRALFATE [Concomitant]
     Active Substance: SUCRALFATE
     Dosage: UNK
     Route: 065
     Dates: start: 19950119
  95. RINGERS SOLUTION [Concomitant]
     Active Substance: CALCIUM CHLORIDE\POTASSIUM CHLORIDE\SODIUM CHLORIDE
     Indication: Product used for unknown indication
     Dosage: UNK
     Route: 065
     Dates: start: 19950113, end: 19950201

REACTIONS (12)
  - Circulatory collapse [Fatal]
  - Toxic epidermal necrolysis [Fatal]
  - Cardiac failure [Fatal]
  - Rash [Unknown]
  - Lymphocytosis [Unknown]
  - Pyrexia [Unknown]
  - Constipation [Unknown]
  - Gamma-glutamyltransferase increased [Unknown]
  - Blood creatinine increased [Unknown]
  - Blood lactate dehydrogenase increased [Unknown]
  - Pruritus [Unknown]
  - Conjunctivitis [Unknown]

NARRATIVE: CASE EVENT DATE: 19950130
